FAERS Safety Report 8563760-4 (Version None)
Quarter: 2012Q3

REPORT INFORMATION
  Report Type: 
  Country: None (occurrence: None)
  Receive Date: 20120803
  Receipt Date: 20120726
  Transmission Date: 20120928
  Serious: Yes (Hospitalization, Other)
  Sender: FDA-Public Use
  Company Number: FR-MSD-2012SP029261

PATIENT

DRUGS (10)
  1. VICTRELIS [Suspect]
     Dosage: 600 MG, QD
     Dates: start: 20110914, end: 20120226
  2. DAIVOBET [Concomitant]
     Indication: PSORIASIS
     Dosage: UNK
     Dates: start: 20110817
  3. VICTRELIS [Suspect]
     Indication: HEPATITIS C
     Dosage: 800 MG, TID
     Dates: start: 20110329
  4. RIBAVIRIN [Suspect]
     Dosage: 400 MG, QD
     Dates: start: 20110914, end: 20120226
  5. VIRAFERONPEG [Suspect]
     Indication: HEPATITIS C
     Dosage: 90 ?G, QW
     Dates: start: 20110329
  6. NEORECORMON [Concomitant]
     Indication: ANAEMIA
     Dosage: 3000 DF, QW
     Dates: start: 20110512
  7. ACETAMINOPHEN [Concomitant]
     Indication: PAIN
     Dosage: 1 G, PRN
     Dates: start: 20110322
  8. LOPERAMIDE [Concomitant]
     Indication: DIARRHOEA
     Dosage: 2 MG, PRN
     Dates: start: 20110322
  9. VIRAFERONPEG [Suspect]
     Dosage: 80 MICROGRAM, QW
     Dates: start: 20110913, end: 20120226
  10. RIBAVIRIN [Suspect]
     Indication: HEPATITIS C
     Dosage: 600 MG, QD
     Dates: start: 20110329

REACTIONS (2)
  - MALAISE [None]
  - HEPATIC NEOPLASM MALIGNANT [None]
